FAERS Safety Report 22221105 (Version 1)
Quarter: 2023Q2

REPORT INFORMATION
  Report Type: Other
  Country: ES (occurrence: ES)
  Receive Date: 20230418
  Receipt Date: 20230418
  Transmission Date: 20230721
  Serious: Yes (Hospitalization)
  Sender: FDA-Public Use
  Company Number: None

PATIENT

DRUGS (4)
  1. OLANZAPINE [Interacting]
     Active Substance: OLANZAPINE
     Indication: Autism spectrum disorder
     Dosage: 15 MILLIGRAM, QD
     Route: 048
     Dates: start: 20220719, end: 20221116
  2. RISPERIDONE [Interacting]
     Active Substance: RISPERIDONE
     Indication: Autism spectrum disorder
     Dosage: 6 MILLIGRAM, QD
     Route: 048
     Dates: start: 20220719, end: 20221116
  3. RIVOTRIL [Concomitant]
     Active Substance: CLONAZEPAM
     Indication: Autism spectrum disorder
     Dosage: 2 MILLIGRAM, QD
     Route: 048
     Dates: start: 20220719, end: 20221116
  4. SERTRALINE HYDROCHLORIDE [Concomitant]
     Active Substance: SERTRALINE HYDROCHLORIDE
     Indication: Autism spectrum disorder
     Dosage: 50 MILLIGRAM, QD
     Route: 048
     Dates: start: 20220719, end: 20221116

REACTIONS (2)
  - Intestinal pseudo-obstruction [Recovered/Resolved]
  - Vomiting [Recovered/Resolved]

NARRATIVE: CASE EVENT DATE: 20221111
